FAERS Safety Report 6034408-8 (Version None)
Quarter: 2009Q1

REPORT INFORMATION
  Report Type: 
  Country: None (occurrence: None)
  Receive Date: 20090112
  Receipt Date: 20090108
  Transmission Date: 20090719
  Serious: Yes (Disabling)
  Sender: FDA-Public Use
  Company Number: A0762701A

PATIENT
  Age: 59 Year
  Sex: Female

DRUGS (11)
  1. ADVAIR DISKUS 250/50 [Suspect]
     Indication: ASTHMA
     Route: 055
     Dates: start: 20070101
  2. SYNTHROID [Concomitant]
  3. ESTRADIOL [Concomitant]
  4. CELEXA [Concomitant]
  5. ZYRTEC [Concomitant]
  6. PRILOSEC [Concomitant]
  7. SINGULAIR [Concomitant]
  8. LOVASTATIN [Concomitant]
  9. TRAZODONE HCL [Concomitant]
  10. FLONASE [Concomitant]
  11. ALBUTEROL [Concomitant]

REACTIONS (6)
  - CORONARY ARTERY OCCLUSION [None]
  - DYSPHONIA [None]
  - DYSPNOEA [None]
  - FATIGUE [None]
  - HAEMOPTYSIS [None]
  - OXYGEN SATURATION DECREASED [None]
